FAERS Safety Report 24631963 (Version 2)
Quarter: 2024Q4

REPORT INFORMATION
  Report Type: Spontaneous
  Country: US (occurrence: US)
  Receive Date: 20241118
  Receipt Date: 20241119
  Transmission Date: 20250115
  Serious: Yes (Death)
  Sender: PFIZER
  Company Number: US-PFIZER INC-202400303596

PATIENT
  Age: 72 Year
  Sex: Female

DRUGS (1)
  1. TUKYSA [Suspect]
     Active Substance: TUCATINIB
     Dosage: 300 MG, 2X/DAY (TAKE TWO 150MG TABLETS BY MOUTH TWICE DAILY)
     Route: 048
     Dates: end: 20241114

REACTIONS (1)
  - Death [Fatal]

NARRATIVE: CASE EVENT DATE: 20241114
